FAERS Safety Report 19742948 (Version 1)
Quarter: 2021Q3

REPORT INFORMATION
  Report Type: Spontaneous
  Country: US (occurrence: US)
  Receive Date: 20210823
  Receipt Date: 20210823
  Transmission Date: 20211014
  Serious: Yes (Hospitalization)
  Sender: FDA-Public Use
  Company Number: None

PATIENT
  Age: 80 Year
  Sex: Male

DRUGS (1)
  1. SILDENAFIL, 20 MG TAB [Suspect]
     Active Substance: SILDENAFIL
     Indication: PULMONARY HYPERTENSION
     Dosage: ?          OTHER FREQUENCY:SES B6 [PAGE 2];?
     Route: 048
     Dates: start: 20200827

REACTIONS (3)
  - Cardiac disorder [None]
  - Lung disorder [None]
  - Therapy interrupted [None]

NARRATIVE: CASE EVENT DATE: 20210819
